FAERS Safety Report 7534454-9 (Version None)
Quarter: 2011Q2

REPORT INFORMATION
  Report Type: 
  Country: None (occurrence: None)
  Receive Date: 20110608
  Receipt Date: 20110124
  Transmission Date: 20111010
  Serious: Yes (Other)
  Sender: FDA-Public Use
  Company Number: AU-GENENTECH-313087

PATIENT
  Age: 13 Year
  Sex: Female

DRUGS (5)
  1. CYCLOPHOSPHAMIDE [Suspect]
     Indication: EPSTEIN-BARR VIRUS ASSOCIATED LYMPHOPROLIFERATIVE DISORDER
     Dosage: UNK
     Route: 065
  2. MYCOPHENOLATE MEFETIL [Suspect]
     Indication: IMMUNOSUPPRESSION
     Dosage: UNK
     Route: 065
  3. TACROLIMUS [Suspect]
     Indication: IMMUNOSUPPRESSION
     Dosage: UNK
     Route: 065
  4. PREDNISOLONE [Suspect]
     Indication: IMMUNOSUPPRESSION
     Dosage: UNK
     Route: 065
  5. RITUXIMAB [Suspect]
     Indication: EPSTEIN-BARR VIRUS ASSOCIATED LYMPHOPROLIFERATIVE DISORDER
     Dosage: UNK
     Route: 065

REACTIONS (3)
  - EPSTEIN-BARR VIRUS ASSOCIATED LYMPHOPROLIFERATIVE DISORDER [None]
  - NEUTROPENIC SEPSIS [None]
  - POSTERIOR REVERSIBLE ENCEPHALOPATHY SYNDROME [None]
